FAERS Safety Report 24145221 (Version 1)
Quarter: 2024Q3

REPORT INFORMATION
  Report Type: Spontaneous
  Country: US (occurrence: US)
  Receive Date: 20240729
  Receipt Date: 20240729
  Transmission Date: 20241016
  Serious: Yes (Other)
  Sender: BRISTOL MYERS SQUIBB
  Company Number: US-BRISTOL-MYERS SQUIBB COMPANY-2024-119141

PATIENT
  Age: 71 Year
  Sex: Female

DRUGS (11)
  1. REVLIMID [Suspect]
     Active Substance: LENALIDOMIDE
     Indication: Plasma cell myeloma
     Dosage: FREQUENCY: TAKE 1 CAPSULE BY MOUTH EVERY MORNING ON DAYS 1-21DAYS OF 28DAY CYCLE, DO NOT CRUSH OR OP
     Route: 048
     Dates: start: 20240424
  2. ACYCLOVIR [Concomitant]
     Active Substance: ACYCLOVIR
  3. AMLODIPINE [Concomitant]
     Active Substance: AMLODIPINE BESYLATE
  4. ASPIRIN [Concomitant]
     Active Substance: ASPIRIN
  5. ATOVAQUONE [Concomitant]
     Active Substance: ATOVAQUONE
     Dosage: 750/5ML
  6. BENADRYL ALLERGY [Concomitant]
     Active Substance: DIPHENHYDRAMINE HYDROCHLORIDE
  7. CALCIUM\CHOLECALCIFEROL [Concomitant]
     Active Substance: CALCIUM\CHOLECALCIFEROL
  8. CARVEDILOL [Concomitant]
     Active Substance: CARVEDILOL
  9. DEXAMETHASONE [Concomitant]
     Active Substance: DEXAMETHASONE
  10. LENALIDOMIDE [Concomitant]
     Active Substance: LENALIDOMIDE
  11. MAGNESIUM [Concomitant]
     Active Substance: MAGNESIUM

REACTIONS (1)
  - Plasma cell myeloma [Unknown]
